FAERS Safety Report 8070924 (Version 3)
Quarter: 2013Q3

REPORT INFORMATION
  Report Type: Spontaneous
  Country: US (occurrence: US)
  Receive Date: 20110805
  Receipt Date: 20130708
  Transmission Date: 20140515
  Serious: Yes (Other)
  Sender: FDA-Public Use
  Company Number: US-JNJFOC-20110712218

PATIENT
  Age: 20 Year
  Sex: Female
  Weight: 62.14 kg

DRUGS (9)
  1. REMICADE [Suspect]
     Indication: COLITIS ULCERATIVE
     Route: 042
     Dates: start: 20100103
  2. REMICADE [Suspect]
     Indication: COLITIS ULCERATIVE
     Dosage: DOSE: 5 MG/KG. APPROXIMATE TOTAL NUMBER OF INFUSIONS THE PATIENT RECEIVED: 10
     Route: 042
     Dates: start: 20110727, end: 20110727
  3. IMURAN [Concomitant]
     Indication: COLITIS ULCERATIVE
     Dosage: (3)
     Route: 048
     Dates: start: 20100402
  4. BALSALAZIDE [Concomitant]
     Indication: COLITIS ULCERATIVE
     Dosage: (3)
     Route: 048
     Dates: start: 20090710
  5. VITAMIN C [Concomitant]
  6. MULTIVITAMINS [Concomitant]
  7. TRI-SPRINTEC [Concomitant]
     Indication: CONTRACEPTION
  8. LECITHIN [Concomitant]
  9. IRON [Concomitant]
     Indication: COLITIS ULCERATIVE
     Dosage: 2 PO (PERORAL)
     Route: 048

REACTIONS (8)
  - Bronchospasm [Recovered/Resolved]
  - Dyspnoea [Recovered/Resolved]
  - Chest discomfort [Recovered/Resolved]
  - Dysphagia [Recovered/Resolved]
  - Aphasia [Recovered/Resolved]
  - Infusion related reaction [Recovered/Resolved]
  - Flushing [Recovered/Resolved]
  - Confusional state [Recovered/Resolved]
